FAERS Safety Report 23738333 (Version 1)
Quarter: 2024Q2

REPORT INFORMATION
  Report Type: Spontaneous
  Country: US (occurrence: US)
  Receive Date: 20240412
  Receipt Date: 20240412
  Transmission Date: 20240716
  Serious: Yes (Other)
  Sender: FDA-Public Use
  Company Number: US-002147023-NVSC2024US076851

PATIENT
  Sex: Female

DRUGS (1)
  1. FEMARA [Suspect]
     Active Substance: LETROZOLE
     Indication: Product used for unknown indication
     Dosage: 2.5 MG (FOR TWO YEARS) (TABLET)
     Route: 048

REACTIONS (5)
  - Impaired gastric emptying [Unknown]
  - Bone pain [Unknown]
  - Nausea [Unknown]
  - Blood cholesterol increased [Unknown]
  - Depression [Unknown]
